FAERS Safety Report 18110602 (Version 1)
Quarter: 2020Q3

REPORT INFORMATION
  Report Type: Spontaneous
  Country: MY (occurrence: MY)
  Receive Date: 20200804
  Receipt Date: 20200804
  Transmission Date: 20201103
  Serious: Yes (Death, Other)
  Sender: FDA-Public Use
  Company Number: MY-FRESENIUS KABI-FK202008009

PATIENT
  Age: 34 Year
  Sex: Male

DRUGS (1)
  1. VANCOMYCIN (MANUFACTURER UNKNOWN) [Suspect]
     Active Substance: VANCOMYCIN
     Indication: CORYNEBACTERIUM INFECTION
     Dosage: UNKNOWN
     Route: 042

REACTIONS (3)
  - Condition aggravated [Fatal]
  - Pleural effusion [Unknown]
  - Treatment failure [Fatal]
